FAERS Safety Report 4549552-1 (Version None)
Quarter: 2005Q1

REPORT INFORMATION
  Report Type: 
  Country: None (occurrence: None)
  Receive Date: 20050111
  Receipt Date: 20041103
  Transmission Date: 20050727
  Serious: Yes (Hospitalization)
  Sender: FDA-Public Use
  Company Number: DE-MERCK-0411DEU00053

PATIENT
  Age: 65 Year
  Sex: Male

DRUGS (4)
  1. VIOXX [Suspect]
     Route: 048
     Dates: start: 20000204, end: 20000101
  2. CELECOXIB [Concomitant]
     Route: 065
     Dates: start: 20020130, end: 20021220
  3. CANDESARTAN CILEXETIL [Concomitant]
     Route: 065
  4. VALDECOXIB [Concomitant]
     Route: 065
     Dates: start: 20030813, end: 20040101

REACTIONS (3)
  - ATRIAL FIBRILLATION [None]
  - GASTRIC ULCER HAEMORRHAGE [None]
  - HEART RATE IRREGULAR [None]
